FAERS Safety Report 13926322 (Version 1)
Quarter: 2017Q3

REPORT INFORMATION
  Report Type: Spontaneous
  Country: KR (occurrence: KR)
  Receive Date: 20170831
  Receipt Date: 20170831
  Transmission Date: 20171127
  Serious: Yes (Death, Hospitalization)
  Sender: FDA-Public Use
  Company Number: KR-CASPER PHARMA LLC-2017SEB00393

PATIENT
  Age: 69 Year
  Sex: Female

DRUGS (1)
  1. ALLOPURINOL. [Suspect]
     Active Substance: ALLOPURINOL
     Indication: GOUT
     Route: 065

REACTIONS (4)
  - Drug reaction with eosinophilia and systemic symptoms [None]
  - Multiple organ dysfunction syndrome [Fatal]
  - Renal failure [Fatal]
  - Septic shock [Fatal]
